FAERS Safety Report 4818197-8 (Version None)
Quarter: 2005Q4

REPORT INFORMATION
  Report Type: 
  Country: None (occurrence: None)
  Receive Date: 20051101
  Receipt Date: 20051101
  Transmission Date: 20060501
  Serious: No
  Sender: FDA-Public Use
  Company Number: None

PATIENT
  Age: 17 Year
  Sex: Male

DRUGS (1)
  1. ISOTRETINOIN   40MG   BERTEK [Suspect]
     Indication: ACNE
     Dosage: 40MG   1-2 X DAY  PO
     Route: 048
     Dates: start: 20050411, end: 20051027

REACTIONS (1)
  - INFECTIOUS MONONUCLEOSIS [None]
